FAERS Safety Report 24995113 (Version 2)
Quarter: 2025Q2

REPORT INFORMATION
  Report Type: Spontaneous
  Country: GB (occurrence: GB)
  Receive Date: 20250221
  Receipt Date: 20250424
  Transmission Date: 20250717
  Serious: Yes (Other)
  Sender: MERCK SHARP & DOHME LLC
  Company Number: GB-MHRA-EMIS-584-3eec2d9d-31a8-4952-9de3-09ba2eddfbe9

PATIENT
  Age: 79 Year
  Sex: Female
  Weight: 70 kg

DRUGS (1)
  1. SITAGLIPTIN [Suspect]
     Active Substance: SITAGLIPTIN
     Dates: end: 20250203

REACTIONS (1)
  - Dyspnoea at rest [Recovering/Resolving]
